FAERS Safety Report 26003096 (Version 1)
Quarter: 2025Q4

REPORT INFORMATION
  Report Type: Spontaneous
  Country: GB (occurrence: GB)
  Receive Date: 20251106
  Receipt Date: 20251106
  Transmission Date: 20260118
  Serious: Yes (Other)
  Sender: AUROBINDO
  Company Number: GB-MHRA-MED-202510241531102480-ZVFGN

PATIENT
  Sex: Male

DRUGS (10)
  1. RAMIPRIL [Suspect]
     Active Substance: RAMIPRIL
     Indication: Hypertension
     Dosage: 2.5 MILLIGRAM, DAILY
     Route: 065
     Dates: start: 20240717, end: 20250429
  2. CALCIUM CARBONATE\CHOLECALCIFEROL [Concomitant]
     Active Substance: CALCIUM CARBONATE\CHOLECALCIFEROL
     Indication: Chronic obstructive pulmonary disease
     Dosage: UNK
     Route: 065
     Dates: start: 20250306
  3. ROSUVASTATIN [Concomitant]
     Active Substance: ROSUVASTATIN
     Indication: Myocardial infarction
     Dosage: UNK
     Route: 065
     Dates: start: 20241202
  4. ASPIRIN [Concomitant]
     Active Substance: ASPIRIN
     Indication: Myocardial infarction
     Dosage: UNK
     Route: 065
     Dates: start: 19991115
  5. OMEPRAZOLE [Concomitant]
     Active Substance: OMEPRAZOLE
     Indication: Gastrooesophageal reflux disease
     Dosage: UNK
     Route: 065
     Dates: start: 20250306
  6. ALBUTEROL [Concomitant]
     Active Substance: ALBUTEROL
     Indication: Asthma
     Dosage: UNK
     Route: 065
     Dates: start: 20000209
  7. BECLOMETHASONE DIPROPIONATE\FORMOTEROL FUMARATE\GLYCOPYRROLATE [Concomitant]
     Active Substance: BECLOMETHASONE DIPROPIONATE\FORMOTEROL FUMARATE\GLYCOPYRROLATE
     Indication: Chronic obstructive pulmonary disease
     Dosage: UNK
     Route: 065
     Dates: start: 20241022
  8. FEXOFENADINE [Concomitant]
     Active Substance: FEXOFENADINE HYDROCHLORIDE
     Indication: Hypersensitivity
     Dosage: UNK
     Route: 065
     Dates: start: 20250224
  9. PREDNISONE [Concomitant]
     Active Substance: PREDNISONE
     Indication: Chronic obstructive pulmonary disease
     Dosage: UNK
     Route: 065
     Dates: start: 20241004
  10. DOXYCYCLINE [Concomitant]
     Active Substance: DOXYCYCLINE
     Indication: Chronic obstructive pulmonary disease
     Dosage: UNK
     Route: 065
     Dates: start: 20250131

REACTIONS (1)
  - Muscle spasms [Recovered/Resolved]

NARRATIVE: CASE EVENT DATE: 20240818
